FAERS Safety Report 12533048 (Version 1)
Quarter: 2016Q3

REPORT INFORMATION
  Report Type: Spontaneous
  Country: US (occurrence: US)
  Receive Date: 20160706
  Receipt Date: 20160706
  Transmission Date: 20161109
  Serious: No
  Sender: FDA-Public Use
  Company Number: US-PURDUE-USA-2015-0126621

PATIENT
  Sex: Female

DRUGS (1)
  1. BUTRANS [Suspect]
     Active Substance: BUPRENORPHINE
     Indication: PAIN
     Dosage: UNK MCG/HR, WEEKLY
     Route: 062
     Dates: start: 201504

REACTIONS (4)
  - Application site pruritus [Unknown]
  - Wrong technique in product usage process [Unknown]
  - Application site pain [Unknown]
  - Product adhesion issue [Unknown]

NARRATIVE: CASE EVENT DATE: 201504
